FAERS Safety Report 11572025 (Version 1)
Quarter: 2015Q3

REPORT INFORMATION
  Report Type: Spontaneous
  Country: US (occurrence: US)
  Receive Date: 20150929
  Receipt Date: 20150929
  Transmission Date: 20151125
  Serious: No
  Sender: FDA-Public Use
  Company Number: US-SA-2015SA131287

PATIENT
  Age: 66 Year
  Sex: Female

DRUGS (1)
  1. AUBAGIO [Suspect]
     Active Substance: TERIFLUNOMIDE
     Indication: RHEUMATOID ARTHRITIS
     Route: 048
     Dates: start: 20150323

REACTIONS (4)
  - Fatigue [Unknown]
  - Feeling hot [Unknown]
  - Flushing [Unknown]
  - Product use issue [Unknown]

NARRATIVE: CASE EVENT DATE: 20150323
